FAERS Safety Report 20383316 (Version 14)
Quarter: 2022Q4

REPORT INFORMATION
  Report Type: Spontaneous
  Country: IN (occurrence: IN)
  Receive Date: 20220127
  Receipt Date: 20221222
  Transmission Date: 20230113
  Serious: Yes (Other)
  Sender: FDA-Public Use
  Company Number: IN-PFIZER INC-2021557518

PATIENT
  Age: 71 Year
  Sex: Female
  Weight: 71 kg

DRUGS (18)
  1. PALBOCICLIB [Suspect]
     Active Substance: PALBOCICLIB
     Indication: Breast cancer metastatic
     Dosage: 125 MG, 1X/DAY
     Route: 048
     Dates: start: 20210409
  2. PALBOCICLIB [Suspect]
     Active Substance: PALBOCICLIB
     Dosage: 125 MG, CYCLIC (ONCE A DAY FOR 21 DAYS AND 7 DAYS OFF)
     Route: 048
     Dates: start: 20210412
  3. PALBOCICLIB [Suspect]
     Active Substance: PALBOCICLIB
     Dosage: 125 MG, CYCLIC (ONCE A DAY FOR 21 DAYS AND 7 DAYS OFF)
     Route: 048
  4. LETROZOLE [Concomitant]
     Active Substance: LETROZOLE
     Dosage: 2.5 MG
     Dates: start: 20210409
  5. PANTOPRAZOLE SODIUM [Concomitant]
     Active Substance: PANTOPRAZOLE SODIUM
     Dosage: 40 MG, 1X/DAY
  6. CALCION [Concomitant]
     Dosage: K2: 7 BD;
  7. CALCION [Concomitant]
     Dosage: 1 DF, 2X/DAY
  8. FOL [Concomitant]
     Dosage: UNK, 1X/DAY FOR ONE MONTH
  9. SPORLAC [Concomitant]
     Dosage: SACHET IN 100ML WATER
  10. ZOLEDRONIC ACID [Concomitant]
     Active Substance: ZOLEDRONIC ACID
     Dosage: 4MF IV ON 100ML NS OVER 30 MIN
     Route: 042
  11. GRILINCTUS [AMMONIUM CHLORIDE;CHLORPHENAMINE MALEATE;DEXTROMETHORPHAN [Concomitant]
     Dosage: UNK
  12. PEGASTA [Concomitant]
     Dosage: 6 MG
     Route: 058
  13. CALCION D3 [Concomitant]
     Dosage: 60000 IU
     Dates: start: 20210409
  14. RABEL D [Concomitant]
     Dosage: OD X 3WEEKS
  15. DENTOGEL [Concomitant]
     Dosage: UNK
  16. AMBROXIL [Concomitant]
     Dosage: UNK
  17. DAYVIT [Concomitant]
     Dosage: UNK
     Dates: start: 20210409
  18. ZOLEBENZ [Concomitant]
     Dosage: 4 MG IN 100ML NS OVER 30MIN

REACTIONS (30)
  - Haemorrhage [Unknown]
  - Pulmonary fibrosis [Unknown]
  - Neutrophil count decreased [Not Recovered/Not Resolved]
  - Neoplasm progression [Unknown]
  - Pain [Unknown]
  - Dyspnoea [Recovering/Resolving]
  - Cough [Unknown]
  - Fatigue [Recovered/Resolved]
  - White blood cell count decreased [Not Recovered/Not Resolved]
  - Pharyngitis [Unknown]
  - Pleural effusion [Unknown]
  - Pruritus [Unknown]
  - Dry skin [Unknown]
  - Haemoglobin decreased [Unknown]
  - Neck pain [Unknown]
  - Back pain [Unknown]
  - Platelet count decreased [Unknown]
  - Full blood count abnormal [Unknown]
  - Lymphadenopathy [Unknown]
  - Pleural thickening [Unknown]
  - Lymphadenopathy mediastinal [Unknown]
  - Thyroid calcification [Unknown]
  - Soft tissue disorder [Unknown]
  - Renal cyst [Unknown]
  - Osteosclerosis [Unknown]
  - Neutrophil count increased [Unknown]
  - Neutrophil percentage abnormal [Unknown]
  - Productive cough [Unknown]
  - Haemophilus test positive [Unknown]
  - White blood cell count increased [Unknown]

NARRATIVE: CASE EVENT DATE: 20210101
